FAERS Safety Report 23032658 (Version 1)
Quarter: 2023Q4

REPORT INFORMATION
  Report Type: Spontaneous
  Country: GB (occurrence: None)
  Receive Date: 20231005
  Receipt Date: 20231005
  Transmission Date: 20240110
  Serious: Yes (Other)
  Sender: FDA-Public Use
  Company Number: GB-MHRA-MED-202309271124426860-HVYWP

PATIENT
  Age: 74 Year
  Sex: Female

DRUGS (1)
  1. VABYSMO [Suspect]
     Active Substance: FARICIMAB-SVOA
     Indication: Neovascular age-related macular degeneration
     Dosage: 120MG/ML (6MG/0.05ML) DELIVERED; ;
     Route: 065
     Dates: start: 20230223, end: 20230829

REACTIONS (4)
  - Eye inflammation [Recovering/Resolving]
  - Uveitis [Unknown]
  - Vitritis [Unknown]
  - Visual acuity reduced [Unknown]

NARRATIVE: CASE EVENT DATE: 20230829
